FAERS Safety Report 7419727-2 (Version None)
Quarter: 2011Q2

REPORT INFORMATION
  Report Type: 
  Country: None (occurrence: None)
  Receive Date: 20110418
  Receipt Date: 20110405
  Transmission Date: 20111010
  Serious: Yes (Death)
  Sender: FDA-Public Use
  Company Number: FR-ELI_LILLY_AND_COMPANY-FR201102007387

PATIENT
  Age: 83 Year
  Sex: Female
  Weight: 68 kg

DRUGS (9)
  1. MIANSERIN [Concomitant]
     Dosage: UNK, UNKNOWN
     Route: 065
  2. LASIX [Concomitant]
     Dosage: UNK, UNKNOWN
     Route: 065
  3. RIVOTRIL [Concomitant]
     Dosage: UNK, UNKNOWN
     Route: 065
  4. FORTEO [Suspect]
     Dosage: 20 UG, QOD
  5. FORTEO [Suspect]
     Indication: OSTEOPOROSIS
     Dosage: 20 UG, DAILY (1/D)
     Route: 058
     Dates: start: 20101203
  6. FORADIL [Concomitant]
     Dosage: UNK, UNKNOWN
     Route: 065
  7. GABAPENTINE [Concomitant]
     Dosage: UNK, UNKNOWN
     Route: 065
  8. PREVISCAN [Concomitant]
     Dosage: UNK, UNKNOWN
     Route: 065
  9. MIFLONIL [Concomitant]
     Dosage: UNK, UNKNOWN
     Route: 065

REACTIONS (2)
  - INTENTIONAL DRUG MISUSE [None]
  - MYOCARDIAL INFARCTION [None]
